FAERS Safety Report 18224364 (Version 1)
Quarter: 2020Q3

REPORT INFORMATION
  Report Type: Spontaneous
  Country: US (occurrence: US)
  Receive Date: 20200902
  Receipt Date: 20200902
  Transmission Date: 20201103
  Serious: Yes (Death, Hospitalization, Other)
  Sender: FDA-Public Use
  Company Number: US-PURDUE-USA-2020-0164291

PATIENT
  Sex: Female

DRUGS (2)
  1. HYDROCODONE BITARTRATE AND ACETAMINOPHEN [Suspect]
     Active Substance: ACETAMINOPHEN\HYDROCODONE BITARTRATE
     Indication: PAIN
     Route: 048
  2. DILAUDID [Suspect]
     Active Substance: HYDROMORPHONE HYDROCHLORIDE
     Indication: PAIN
     Route: 048

REACTIONS (7)
  - Overdose [Unknown]
  - Drug abuse [Unknown]
  - Pancreatic pseudocyst [Fatal]
  - Hospitalisation [Unknown]
  - Drug dependence [Unknown]
  - Myocardial infarction [Fatal]
  - Pancreatitis [Unknown]

NARRATIVE: CASE EVENT DATE: 20150110
